FAERS Safety Report 9168349 (Version 1)
Quarter: 2013Q1

REPORT INFORMATION
  Report Type: Spontaneous
  Country: JP (occurrence: JP)
  Receive Date: 20130318
  Receipt Date: 20130318
  Transmission Date: 20140127
  Serious: Yes (Hospitalization)
  Sender: FDA-Public Use
  Company Number: JP-NOVOPROD-373075

PATIENT
  Age: 40 Year
  Sex: Female

DRUGS (1)
  1. NOVORAPID 30 MIX [Suspect]
     Indication: SUICIDE ATTEMPT
     Dosage: 5400 IU, QD
     Route: 058

REACTIONS (3)
  - Suicide attempt [Unknown]
  - Intentional drug misuse [Unknown]
  - Hypoglycaemia [Recovered/Resolved]
